FAERS Safety Report 6191088-9 (Version None)
Quarter: 2009Q2

REPORT INFORMATION
  Report Type: 
  Country: None (occurrence: None)
  Receive Date: 20090513
  Receipt Date: 20090513
  Transmission Date: 20091009
  Serious: Yes (Other)
  Sender: FDA-Public Use
  Company Number: None

PATIENT
  Sex: Female
  Weight: 75.7507 kg

DRUGS (6)
  1. CYCOBENZAPRINE 10M 3TIME DAILY [Suspect]
     Indication: BURNING SENSATION
     Dosage: 3 TIME DAILY MUSCLE SPASM
  2. BACLOFEN [Suspect]
     Indication: VITAMIN B12 ABNORMAL
     Dosage: 3 TIME DAILY MUSCLE SPASM
  3. GABAPENTIN [Suspect]
     Dosage: 300MG 3 TIMES DAY
  4. NEURONTIN [Suspect]
     Dosage: 300 M
  5. DICYCLOMINE [Concomitant]
  6. HYDROCHIORIDE [Concomitant]

REACTIONS (4)
  - ABDOMINAL PAIN UPPER [None]
  - EXCESSIVE EYE BLINKING [None]
  - HAEMATEMESIS [None]
  - VISION BLURRED [None]
